FAERS Safety Report 6468494-8 (Version None)
Quarter: 2009Q4

REPORT INFORMATION
  Report Type: 
  Country: None (occurrence: None)
  Receive Date: 20091202
  Receipt Date: 20091202
  Transmission Date: 20100525
  Serious: Yes (Hospitalization)
  Sender: FDA-Public Use
  Company Number: None

PATIENT
  Age: 75 Year
  Sex: Male
  Weight: 66.6788 kg

DRUGS (8)
  1. NORDITROPIN NORDIFLEX [Suspect]
     Indication: HYPOPITUITARISM
     Dosage: 0.3MG QOD S.Q.
     Route: 058
     Dates: start: 20060601
  2. VERAPAMIL EXTENDED-RELEASE [Concomitant]
  3. VYTORIN [Concomitant]
  4. VITAMIN D [Concomitant]
  5. MILK [Concomitant]
  6. OS-CAL [Concomitant]
  7. CIALIS [Concomitant]
  8. TESTIM [Concomitant]

REACTIONS (1)
  - CHEST PAIN [None]
